FAERS Safety Report 24867440 (Version 1)
Quarter: 2025Q1

REPORT INFORMATION
  Report Type: Spontaneous
  Country: US (occurrence: None)
  Receive Date: 20250117
  Receipt Date: 20250117
  Transmission Date: 20250408
  Serious: No
  Sender: FDA-CTU
  Company Number: None

PATIENT
  Sex: Female

DRUGS (7)
  1. DEVICE [Suspect]
     Active Substance: DEVICE
  2. TREPROSTINIL [Suspect]
     Active Substance: TREPROSTINIL
     Indication: Pulmonary arterial hypertension
     Route: 042
     Dates: start: 202407
  3. TADALAFIL [Concomitant]
     Active Substance: TADALAFIL
  4. FLOLAN STERILE DILUENT (50ML) [Concomitant]
  5. OPSUMIT [Concomitant]
     Active Substance: MACITENTAN
  6. MACITENTAN\TADALAFIL [Concomitant]
     Active Substance: MACITENTAN\TADALAFIL
  7. TREPROSTINIL [Suspect]
     Active Substance: TREPROSTINIL

REACTIONS (1)
  - Device failure [None]
